FAERS Safety Report 10474015 (Version 1)
Quarter: 2014Q3

REPORT INFORMATION
  Report Type: Spontaneous
  Country: US (occurrence: US)
  Receive Date: 20140924
  Receipt Date: 20140924
  Transmission Date: 20150326
  Serious: Yes (Hospitalization)
  Sender: FDA-Public Use
  Company Number: US-GLAXOSMITHKLINE-A1090414A

PATIENT
  Age: 58 Year
  Sex: Male

DRUGS (13)
  1. VITAMIN D3 [Concomitant]
     Active Substance: CHOLECALCIFEROL
  2. CALCITROL [Concomitant]
     Active Substance: CALCITRIOL
  3. COREG [Suspect]
     Active Substance: CARVEDILOL
     Indication: HYPERTENSION
     Dosage: 10MG PER DAY
     Route: 048
     Dates: start: 2011, end: 201308
  4. CLONIDINE. [Suspect]
     Active Substance: CLONIDINE
     Indication: PRODUCT USED FOR UNKNOWN INDICATION
     Dosage: .3MG WEEKLY
     Dates: start: 2011, end: 20140908
  5. FISH OIL [Concomitant]
     Active Substance: FISH OIL
  6. DIOVAN HCT [Concomitant]
     Active Substance: HYDROCHLOROTHIAZIDE\VALSARTAN
  7. MINOXIDIL. [Concomitant]
     Active Substance: MINOXIDIL
  8. PAIN MEDICATION [Concomitant]
     Active Substance: UNSPECIFIED INGREDIENT
  9. FUROSEMIDE. [Concomitant]
     Active Substance: FUROSEMIDE
  10. CRESTOR [Concomitant]
     Active Substance: ROSUVASTATIN CALCIUM
  11. ASPIRIN LOW DOSE [Concomitant]
     Active Substance: ASPIRIN
  12. INSULIN [Concomitant]
     Active Substance: INSULIN NOS
  13. GLIPIZIDE. [Concomitant]
     Active Substance: GLIPIZIDE

REACTIONS (3)
  - Renal disorder [Unknown]
  - Dialysis [Unknown]
  - Labelled drug-drug interaction medication error [Unknown]

NARRATIVE: CASE EVENT DATE: 201308
